FAERS Safety Report 7585419-2 (Version None)
Quarter: 2011Q3

REPORT INFORMATION
  Report Type: 
  Country: None (occurrence: None)
  Receive Date: 20110701
  Receipt Date: 20110608
  Transmission Date: 20111222
  Serious: Yes (Other)
  Sender: FDA-Public Use
  Company Number: US-BAYER-201035132NA

PATIENT
  Age: 24 Year
  Sex: Female
  Weight: 113.38 kg

DRUGS (7)
  1. DROSPIRENONE AND ETHINYL ESTRADIOL [Suspect]
     Dosage: UNK
     Dates: start: 20080801, end: 20090701
  2. WELLBUTRIN [Concomitant]
  3. ALBUTEROL SULFATE AUTOHALER [Concomitant]
  4. YASMIN [Suspect]
     Indication: PRODUCT USED FOR UNKNOWN INDICATION
     Dosage: UNK
     Dates: start: 20040401, end: 20080701
  5. LACTULOSE [Concomitant]
  6. YASMIN [Suspect]
     Dosage: UNK
     Dates: start: 20090801, end: 20091101
  7. TOPAMAX [Concomitant]

REACTIONS (5)
  - BILIARY DYSKINESIA [None]
  - PAIN [None]
  - GALLBLADDER CHOLESTEROLOSIS [None]
  - CHOLECYSTITIS CHRONIC [None]
  - ABDOMINAL PAIN UPPER [None]
